FAERS Safety Report 19763240 (Version 1)
Quarter: 2021Q3

REPORT INFORMATION
  Report Type: Other
  Country: PA (occurrence: PA)
  Receive Date: 20210830
  Receipt Date: 20210830
  Transmission Date: 20211014
  Serious: Yes (Other)
  Sender: FDA-Public Use
  Company Number: PA-ROCHE-2669255

PATIENT
  Age: 69 Year
  Sex: Male
  Weight: 73 kg

DRUGS (6)
  1. OXYCODONE [Concomitant]
     Active Substance: OXYCODONE
     Indication: PAIN
     Dosage: 20 PER CAPSULE EACH 12 HOURS
     Route: 048
     Dates: start: 201909
  2. GABAPENTIN. [Concomitant]
     Active Substance: GABAPENTIN
     Indication: PAIN
     Dosage: 400 PER CAPSULE ?FREQUENCY: HS (HORA SOMNI ? AT BED TIME)
     Route: 048
     Dates: start: 201909
  3. PACLITAXEL. [Suspect]
     Active Substance: PACLITAXEL
     Indication: NON-SMALL CELL LUNG CANCER
     Route: 042
     Dates: start: 20190919, end: 20201129
  4. BEVACIZUMAB. [Suspect]
     Active Substance: BEVACIZUMAB
     Indication: NON-SMALL CELL LUNG CANCER
     Dosage: ON 14/AUG/2020, HE ADMINISTERED LAST DOSE OF BEVACIZUMAB.
     Route: 042
     Dates: start: 20190919
  5. CARBOPLATIN. [Suspect]
     Active Substance: CARBOPLATIN
     Indication: NON-SMALL CELL LUNG CANCER
     Dosage: AUC 6
     Route: 042
     Dates: start: 20190919, end: 20201129
  6. ATEZOLIZUMAB. [Suspect]
     Active Substance: ATEZOLIZUMAB
     Indication: NON-SMALL CELL LUNG CANCER
     Dosage: ON 14/AUG/2020, HE ADMINISTERED LAST DOSE OF ATEZOLIZUMAB.
     Route: 041
     Dates: start: 20190919

REACTIONS (6)
  - Nephrotic syndrome [Unknown]
  - Neuropathy peripheral [Recovering/Resolving]
  - Oedema peripheral [Not Recovered/Not Resolved]
  - Proteinuria [Unknown]
  - Hypoalbuminaemia [Not Recovered/Not Resolved]
  - Hypothyroidism [Recovering/Resolving]

NARRATIVE: CASE EVENT DATE: 20191115
